FAERS Safety Report 20583409 (Version 1)
Quarter: 2022Q1

REPORT INFORMATION
  Report Type: Spontaneous
  Country: US (occurrence: US)
  Receive Date: 20220311
  Receipt Date: 20220311
  Transmission Date: 20220424
  Serious: No
  Sender: FDA-Public Use
  Company Number: US-FOUNDATIONCONSUMERHC-2022-US-002286

PATIENT
  Age: 46 Year
  Sex: Female
  Weight: 65.77 kg

DRUGS (1)
  1. AFTERA [Suspect]
     Active Substance: LEVONORGESTREL
     Indication: Post coital contraception
     Dosage: 1.5MG X 1 DOSE
     Route: 048
     Dates: start: 20211210, end: 20211210

REACTIONS (3)
  - Hot flush [Not Recovered/Not Resolved]
  - Blood follicle stimulating hormone increased [Not Recovered/Not Resolved]
  - Postmenopause [Not Recovered/Not Resolved]

NARRATIVE: CASE EVENT DATE: 20211230
